FAERS Safety Report 4745844-1 (Version None)
Quarter: 2005Q3

REPORT INFORMATION
  Report Type: 
  Country: None (occurrence: None)
  Receive Date: 20050816
  Receipt Date: 20050804
  Transmission Date: 20060218
  Serious: Yes (Hospitalization)
  Sender: FDA-Public Use
  Company Number: NSADSS2001018054

PATIENT
  Age: 15 Year
  Sex: Male

DRUGS (10)
  1. REMICADE [Suspect]
     Route: 041
  2. REMICADE [Suspect]
     Indication: CROHN'S DISEASE
     Route: 041
  3. 6-MP [Concomitant]
  4. PREDNISONE [Concomitant]
  5. MESALAMINE [Concomitant]
  6. DICYCLOMINE [Concomitant]
  7. MEGESTROL [Concomitant]
  8. SERTRALINE HCL [Concomitant]
  9. SULFASALAZINE [Concomitant]
  10. MERCAPTOPURINE [Concomitant]

REACTIONS (6)
  - APHTHOUS STOMATITIS [None]
  - EPISTAXIS [None]
  - GASTROINTESTINAL HAEMORRHAGE [None]
  - HAEMOGLOBIN DECREASED [None]
  - HAEMORRHAGE [None]
  - IDIOPATHIC THROMBOCYTOPENIC PURPURA [None]
